FAERS Safety Report 13898616 (Version 1)
Quarter: 2017Q3

REPORT INFORMATION
  Report Type: Spontaneous
  Country: US (occurrence: US)
  Receive Date: 20170824
  Receipt Date: 20170824
  Transmission Date: 20171127
  Serious: No
  Sender: FDA-Public Use
  Company Number: US-GLAXOSMITHKLINE-US2017130460

PATIENT
  Sex: Male

DRUGS (2)
  1. ZOCOR [Concomitant]
     Active Substance: SIMVASTATIN
  2. AVODART [Suspect]
     Active Substance: DUTASTERIDE
     Indication: PROSTATOMEGALY
     Dosage: 0.5 MG, QD
     Dates: start: 2014, end: 201702

REACTIONS (1)
  - Drug ineffective [Not Recovered/Not Resolved]
